FAERS Safety Report 6292486-5 (Version None)
Quarter: 2009Q3

REPORT INFORMATION
  Report Type: 
  Country: None (occurrence: None)
  Receive Date: 20090731
  Receipt Date: 20090721
  Transmission Date: 20100115
  Serious: Yes (Death, Hospitalization, Other)
  Sender: FDA-Public Use
  Company Number: US-BAXTER-2009BH009667

PATIENT
  Age: 54 Year
  Sex: Male

DRUGS (1)
  1. DIANEAL [Suspect]
     Indication: PERITONEAL DIALYSIS
     Route: 033
     Dates: start: 19990531, end: 20090509

REACTIONS (8)
  - ABDOMINAL PAIN [None]
  - ABSCESS INTESTINAL [None]
  - DEATH [None]
  - GENERAL PHYSICAL HEALTH DETERIORATION [None]
  - LIVER ABSCESS [None]
  - PERITONITIS [None]
  - SMALL INTESTINAL PERFORATION [None]
  - SWELLING [None]
